FAERS Safety Report 15536443 (Version 1)
Quarter: 2018Q4

REPORT INFORMATION
  Report Type: Spontaneous
  Country: FR (occurrence: FR)
  Receive Date: 20181022
  Receipt Date: 20181022
  Transmission Date: 20190205
  Serious: Yes (Hospitalization)
  Sender: FDA-Public Use
  Company Number: FR-SUN PHARMACEUTICAL INDUSTRIES LTD-2018RR-188292

PATIENT
  Age: 92 Year
  Sex: Female
  Weight: 70 kg

DRUGS (6)
  1. HEMIGOXINE NATIVELLE 0,125 MG, COMPRIME [Suspect]
     Active Substance: DIGOXIN
     Indication: POISONING DELIBERATE
     Dosage: IN TOTAL
     Route: 048
     Dates: start: 20180814, end: 20180814
  2. DONORMYL (DOXYLAMINE SUCCINATE) [Suspect]
     Active Substance: DOXYLAMINE SUCCINATE
     Indication: POISONING DELIBERATE
     Dosage: IN TOTAL
     Route: 048
     Dates: start: 20180814, end: 20180814
  3. RISPERIDONE. [Suspect]
     Active Substance: RISPERIDONE
     Indication: POISONING DELIBERATE
     Dosage: IN TOTAL
     Route: 048
     Dates: start: 20180814, end: 20180814
  4. XARELTO [Suspect]
     Active Substance: RIVAROXABAN
     Indication: POISONING DELIBERATE
     Dosage: IN TOTAL
     Route: 048
     Dates: start: 20180814, end: 20180814
  5. DEPAKOTE [Suspect]
     Active Substance: DIVALPROEX SODIUM
     Indication: POISONING DELIBERATE
     Dosage: IN TOTAL
     Route: 048
     Dates: start: 20180814, end: 20180814
  6. LASILIX FAIBLE 20 MG, COMPRIME [Suspect]
     Active Substance: FUROSEMIDE
     Indication: POISONING DELIBERATE
     Dosage: IN TOTAL
     Route: 048
     Dates: start: 20180814, end: 20180814

REACTIONS (4)
  - Acute kidney injury [Recovered/Resolved]
  - Prothrombin time shortened [Recovered/Resolved]
  - Somnolence [Recovered/Resolved]
  - Hypotension [Recovered/Resolved]

NARRATIVE: CASE EVENT DATE: 20180814
